FAERS Safety Report 6525871-4 (Version None)
Quarter: 2010Q1

REPORT INFORMATION
  Report Type: 
  Country: None (occurrence: None)
  Receive Date: 20100104
  Receipt Date: 20091224
  Transmission Date: 20100710
  Serious: Yes (Other)
  Sender: FDA-Public Use
  Company Number: B0622373A

PATIENT
  Sex: Female
  Weight: 108 kg

DRUGS (4)
  1. SERETIDE [Suspect]
     Indication: ASTHMA
     Route: 055
     Dates: start: 19950101
  2. SINGULAIR [Concomitant]
     Route: 048
     Dates: start: 20090501
  3. ALBUTEROL [Concomitant]
     Route: 055
     Dates: start: 19920101
  4. MIZOLLEN [Concomitant]
     Route: 048
     Dates: start: 20070701

REACTIONS (4)
  - ASTHMA [None]
  - DYSPHONIA [None]
  - OROPHARYNGEAL PAIN [None]
  - PRODUCTIVE COUGH [None]
